FAERS Safety Report 6533397-7 (Version None)
Quarter: 2010Q1

REPORT INFORMATION
  Report Type: 
  Country: None (occurrence: None)
  Receive Date: 20100111
  Receipt Date: 20100106
  Transmission Date: 20100710
  Serious: Yes (Other)
  Sender: FDA-Public Use
  Company Number: GB-TEVA-219912ISR

PATIENT
  Age: 45 Year
  Sex: Female

DRUGS (3)
  1. FLUDARABINE [Suspect]
     Indication: STEM CELL TRANSPLANT
  2. ALEMTUZUMAB [Suspect]
     Indication: STEM CELL TRANSPLANT
  3. BUSULFAN [Suspect]
     Indication: STEM CELL TRANSPLANT

REACTIONS (12)
  - ANGIOTENSIN CONVERTING ENZYME DECREASED [None]
  - ASPARTATE AMINOTRANSFERASE INCREASED [None]
  - BLOOD ALKALINE PHOSPHATASE INCREASED [None]
  - FIBROSIS [None]
  - GAMMA-GLUTAMYLTRANSFERASE INCREASED [None]
  - GRANULOMA SKIN [None]
  - GRANULOMATOUS LIVER DISEASE [None]
  - LIVER PALPABLE SUBCOSTAL [None]
  - LUNG NEOPLASM [None]
  - ORAL DISORDER [None]
  - SARCOIDOSIS [None]
  - SKIN LESION [None]
